FAERS Safety Report 17957513 (Version 2)
Quarter: 2020Q3

REPORT INFORMATION
  Report Type: Report from Study
  Country: US (occurrence: US)
  Receive Date: 20200629
  Receipt Date: 20200702
  Transmission Date: 20201103
  Serious: Yes (Other)
  Sender: FDA-Public Use
  Company Number: US-JNJFOC-20200623619

PATIENT
  Age: 20 Year
  Sex: Female

DRUGS (2)
  1. SPRAVATO [Suspect]
     Active Substance: ESKETAMINE
     Indication: DEPRESSION
  2. SPRAVATO [Suspect]
     Active Substance: ESKETAMINE
     Dates: start: 20200613, end: 20200613

REACTIONS (10)
  - Vision blurred [Unknown]
  - Sedation [Recovered/Resolved]
  - Dissociation [Recovered/Resolved]
  - Euphoric mood [Unknown]
  - Feeling cold [Unknown]
  - Hypoaesthesia [Unknown]
  - Throat tightness [Recovering/Resolving]
  - Psychomotor hyperactivity [Unknown]
  - Anxiety [Unknown]
  - Nausea [Recovered/Resolved]

NARRATIVE: CASE EVENT DATE: 20200613
